FAERS Safety Report 19018179 (Version 1)
Quarter: 2021Q1

REPORT INFORMATION
  Report Type: Spontaneous
  Country: BI (occurrence: BI)
  Receive Date: 20210317
  Receipt Date: 20210317
  Transmission Date: 20210420
  Serious: No
  Sender: FDA-Public Use
  Company Number: BI-ELI_LILLY_AND_COMPANY-BI202103002599

PATIENT
  Age: 57 Year
  Sex: Male

DRUGS (1)
  1. BAMLANIVIMAB. [Suspect]
     Active Substance: BAMLANIVIMAB
     Indication: COVID-19 PROPHYLAXIS
     Dosage: 17.5 MG, SINGLE
     Route: 030
     Dates: start: 20210303, end: 20210303

REACTIONS (2)
  - Incorrect route of product administration [Unknown]
  - Wrong product administered [Unknown]
